FAERS Safety Report 17456103 (Version 1)
Quarter: 2020Q1

REPORT INFORMATION
  Report Type: Spontaneous
  Country: US (occurrence: US)
  Receive Date: 20200225
  Receipt Date: 20200225
  Transmission Date: 20200409
  Serious: No
  Sender: FDA-Public Use
  Company Number: None

PATIENT
  Age: 69 Year
  Sex: Female
  Weight: 78.3 kg

DRUGS (21)
  1. COUMADIN [Concomitant]
     Active Substance: WARFARIN SODIUM
  2. TUSSIN CF [Concomitant]
     Active Substance: DEXTROMETHORPHAN HYDROBROMIDE\GUAIFENESIN\PHENYLEPHRINE HYDROCHLORIDE
  3. VENTOLIN [Concomitant]
     Active Substance: ALBUTEROL SULFATE
  4. LEVOTHYROXINE. [Concomitant]
     Active Substance: LEVOTHYROXINE
  5. CHOLECALCIFEROL [Concomitant]
     Active Substance: CHOLECALCIFEROL
  6. DEXAMETHASONE. [Concomitant]
     Active Substance: DEXAMETHASONE
  7. CYCLOPHOSPHAMIDE. [Suspect]
     Active Substance: CYCLOPHOSPHAMIDE
     Indication: PLASMA CELL MYELOMA
     Dates: start: 20200204
  8. PROTONIX [Concomitant]
     Active Substance: PANTOPRAZOLE SODIUM
  9. NEURONTIN [Concomitant]
     Active Substance: GABAPENTIN
  10. MELATONIN [Concomitant]
     Active Substance: MELATONIN
  11. NINLARO [Suspect]
     Active Substance: IXAZOMIB CITRATE
  12. MORPHINE [Concomitant]
     Active Substance: MORPHINE
  13. PRINIVIL [Concomitant]
     Active Substance: LISINOPRIL
  14. CYMBALTA [Concomitant]
     Active Substance: DULOXETINE HYDROCHLORIDE
  15. MEDROL [Concomitant]
     Active Substance: METHYLPREDNISOLONE
  16. AMBIEN [Concomitant]
     Active Substance: ZOLPIDEM TARTRATE
  17. TRAZODONE [Concomitant]
     Active Substance: TRAZODONE HYDROCHLORIDE
  18. MUCINEX DM [Concomitant]
     Active Substance: DEXTROMETHORPHAN HYDROBROMIDE\GUAIFENESIN
  19. VALACYCLOVIR [Concomitant]
     Active Substance: VALACYCLOVIR HYDROCHLORIDE
  20. ONDANSETRON [Concomitant]
     Active Substance: ONDANSETRON
  21. BEO [Concomitant]

REACTIONS (3)
  - Neck pain [None]
  - Spinal pain [None]
  - Musculoskeletal pain [None]

NARRATIVE: CASE EVENT DATE: 20200225
